FAERS Safety Report 10753919 (Version 1)
Quarter: 2015Q1

REPORT INFORMATION
  Report Type: Spontaneous
  Country: US (occurrence: None)
  Receive Date: 20150129
  Receipt Date: 20150129
  Transmission Date: 20150721
  Serious: Yes (Disabling)
  Sender: FDA-Public Use
  Company Number: None

PATIENT
  Age: 42 Year
  Sex: Female
  Weight: 115.67 kg

DRUGS (1)
  1. INVOKANA [Suspect]
     Active Substance: CANAGLIFLOZIN
     Indication: TYPE 2 DIABETES MELLITUS
     Dosage: INVOKANA
     Route: 048
     Dates: start: 20141128, end: 20150128

REACTIONS (4)
  - Impaired work ability [None]
  - Urinary tract infection [None]
  - Body temperature increased [None]
  - Sepsis [None]

NARRATIVE: CASE EVENT DATE: 20150124
